FAERS Safety Report 5843579-5 (Version None)
Quarter: 2008Q3

REPORT INFORMATION
  Report Type: 
  Country: None (occurrence: None)
  Receive Date: 20080813
  Receipt Date: 20080509
  Transmission Date: 20090109
  Serious: No
  Sender: FDA-Public Use
  Company Number: A0727233A

PATIENT
  Age: 85 Year
  Sex: Male

DRUGS (6)
  1. COREG CR [Suspect]
     Dosage: 40MG PER DAY
     Route: 048
     Dates: start: 20080424
  2. LISINOPRIL [Concomitant]
  3. ASPIRIN [Concomitant]
  4. LUPRON [Concomitant]
  5. SPIRONOLACTONE [Concomitant]
  6. FUROSEMIDE [Concomitant]

REACTIONS (2)
  - FATIGUE [None]
  - HYPERSOMNIA [None]
